FAERS Safety Report 24962676 (Version 1)
Quarter: 2025Q1

REPORT INFORMATION
  Report Type: Spontaneous
  Country: US (occurrence: US)
  Receive Date: 20250212
  Receipt Date: 20250212
  Transmission Date: 20250408
  Serious: No
  Sender: BRECKENRIDGE PHARMACEUTICAL, INC.
  Company Number: US-Breckenridge Pharmaceutical, Inc.-2171031

PATIENT
  Sex: Male

DRUGS (1)
  1. ASENAPINE [Suspect]
     Active Substance: ASENAPINE

REACTIONS (3)
  - Incorrect dose administered [Unknown]
  - Therapeutic product effect incomplete [Unknown]
  - Aggression [Unknown]
